FAERS Safety Report 23225760 (Version 1)
Quarter: 2023Q4

REPORT INFORMATION
  Report Type: Spontaneous
  Country: US (occurrence: US)
  Receive Date: 20231124
  Receipt Date: 20231124
  Transmission Date: 20240110
  Serious: No
  Sender: FDA-Public Use
  Company Number: US-SA-SAC20231117000871

PATIENT
  Sex: Female
  Weight: 128 kg

DRUGS (6)
  1. KEVZARA [Suspect]
     Active Substance: SARILUMAB
     Indication: Polymyalgia rheumatica
     Dosage: 200 MG, QOW
     Route: 058
     Dates: start: 20230804, end: 202310
  2. KEVZARA [Suspect]
     Active Substance: SARILUMAB
     Indication: Illness
  3. ADVIL [Concomitant]
     Active Substance: IBUPROFEN
  4. ESZOPICLONE [Concomitant]
     Active Substance: ESZOPICLONE
  5. PREDNISONE [Concomitant]
     Active Substance: PREDNISONE
  6. RINVOQ [Concomitant]
     Active Substance: UPADACITINIB

REACTIONS (2)
  - Influenza like illness [Unknown]
  - Headache [Unknown]

NARRATIVE: CASE EVENT DATE: 20230101
